FAERS Safety Report 6087263-4 (Version None)
Quarter: 2009Q1

REPORT INFORMATION
  Report Type: 
  Country: None (occurrence: None)
  Receive Date: 20090219
  Receipt Date: 20090210
  Transmission Date: 20090719
  Serious: Yes (Other)
  Sender: FDA-Public Use
  Company Number: 09-000174

PATIENT
  Age: 61 Year
  Sex: Male

DRUGS (3)
  1. TACLONEX [Suspect]
     Indication: PSORIASIS
     Dosage: 100 GM, TOPICAL, TOPICAL
     Route: 061
     Dates: start: 20071001
  2. ZETIA [Concomitant]
  3. LISINOPRIL [Concomitant]

REACTIONS (1)
  - CARDIAC FAILURE CONGESTIVE [None]
